FAERS Safety Report 4448404-5 (Version None)
Quarter: 2004Q3

REPORT INFORMATION
  Report Type: 
  Country: None (occurrence: None)
  Receive Date: 20040730
  Receipt Date: 20040218
  Transmission Date: 20050211
  Serious: Yes (Hospitalization, Other)
  Sender: FDA-Public Use
  Company Number: 2004-02-1701

PATIENT
  Age: 73 Year
  Sex: Male
  Weight: 87.0906 kg

DRUGS (13)
  1. INTRON A [Suspect]
     Indication: MALIGNANT MELANOMA
     Dosage: SEE IMAGE
     Route: 042
     Dates: start: 20030114, end: 20030201
  2. INTRON A [Suspect]
     Indication: MALIGNANT MELANOMA
     Dosage: SEE IMAGE
     Route: 042
     Dates: start: 20030201, end: 20031124
  3. .. [Concomitant]
  4. AEROBID [Concomitant]
  5. SEREVENT [Concomitant]
  6. CENTRUM [Concomitant]
  7. VITAMIN E [Concomitant]
  8. POTASSIUM [Concomitant]
  9. VITAMIN C [Concomitant]
  10. CALTRATE [Concomitant]
  11. ASPIRIN [Concomitant]
  12. ALFAFA [Concomitant]
  13. OXYGEN [Concomitant]

REACTIONS (4)
  - ASTHENIA [None]
  - DRUG INEFFECTIVE [None]
  - METASTASES TO LUNG [None]
  - METASTASES TO LYMPH NODES [None]
